FAERS Safety Report 10564615 (Version 1)
Quarter: 2014Q4

REPORT INFORMATION
  Report Type: Spontaneous
  Country: US (occurrence: US)
  Receive Date: 20141104
  Receipt Date: 20141104
  Transmission Date: 20150529
  Serious: No
  Sender: FDA-Public Use
  Company Number: US-MALLINCKRODT-T201402450

PATIENT
  Sex: Female

DRUGS (2)
  1. FENTANYL. [Concomitant]
     Active Substance: FENTANYL
     Indication: PAIN
     Dosage: 100 UG/HR, 2 PATCHES Q48H
     Route: 062
  2. FENTANYL CITRATE. [Suspect]
     Active Substance: FENTANYL CITRATE
     Indication: BREAKTHROUGH PAIN
     Dosage: 1600 ?G, QID
     Route: 048
     Dates: start: 2009, end: 20140227

REACTIONS (3)
  - Pain [None]
  - Economic problem [None]
  - Product use issue [Recovered/Resolved]

NARRATIVE: CASE EVENT DATE: 2009
